FAERS Safety Report 14205596 (Version 1)
Quarter: 2017Q4

REPORT INFORMATION
  Report Type: Spontaneous
  Country: US (occurrence: US)
  Receive Date: 20171120
  Receipt Date: 20171120
  Transmission Date: 20180321
  Serious: No
  Sender: FDA-Public Use
  Company Number: US-PFIZER INC-2017494666

PATIENT
  Sex: Female
  Weight: 92 kg

DRUGS (24)
  1. HEPARIN SODIUM. [Suspect]
     Active Substance: HEPARIN SODIUM
     Dosage: UNK
  2. REGLAN [Suspect]
     Active Substance: METOCLOPRAMIDE HYDROCHLORIDE
     Dosage: UNK
  3. SCOPACE [Suspect]
     Active Substance: SCOPOLAMINE HYDROBROMIDE
     Dosage: UNK
     Dates: start: 2005
  4. BUTAZOLIDINE (PHENYLBUTAZONE) [Suspect]
     Active Substance: PHENYLBUTAZONE
     Dosage: UNK
     Dates: start: 1980
  5. MICONAZOLE. [Suspect]
     Active Substance: MICONAZOLE
  6. MORPHINE SULFATE. [Suspect]
     Active Substance: MORPHINE SULFATE
     Dosage: UNK
     Dates: start: 2015
  7. AMLODIPINE BESILATE [Suspect]
     Active Substance: AMLODIPINE BESYLATE
     Dosage: UNK
     Dates: start: 2006
  8. MACRODANTIN [Suspect]
     Active Substance: NITROFURANTOIN
     Dosage: UNK
     Dates: start: 1985
  9. POLYETHYLENE GLYCOL [Suspect]
     Active Substance: POLYETHYLENE GLYCOLS
     Dosage: UNK
     Dates: start: 2005
  10. ADVAIR HFA [Suspect]
     Active Substance: FLUTICASONE PROPIONATE\SALMETEROL XINAFOATE
     Dosage: UNK
     Dates: start: 2006
  11. TIMOLOL MALEATE. [Suspect]
     Active Substance: TIMOLOL MALEATE
     Dosage: UNK
     Dates: start: 2007
  12. BIAXIN [Suspect]
     Active Substance: CLARITHROMYCIN
     Dosage: UNK
     Dates: start: 2000
  13. VANCORIN [Suspect]
     Active Substance: VANCOMYCIN HYDROCHLORIDE
     Dosage: UNK
     Dates: start: 2003
  14. NIZORAL [Suspect]
     Active Substance: KETOCONAZOLE
     Dosage: UNK
     Dates: start: 2004
  15. HYDROCODIN [Suspect]
     Active Substance: DIHYDROCODEINE BITARTRATE
     Dosage: UNK
     Dates: start: 2015
  16. REMICADE [Suspect]
     Active Substance: INFLIXIMAB
     Dosage: UNK
  17. TOBRAMYCIN. [Suspect]
     Active Substance: TOBRAMYCIN
  18. NASONEX [Suspect]
     Active Substance: MOMETASONE FUROATE
     Dosage: UNK
     Dates: start: 2005
  19. AUGMENTIN [Suspect]
     Active Substance: AMOXICILLIN\CLAVULANATE POTASSIUM
     Dosage: UNK
     Dates: start: 2002
  20. CHLORZOXAZONE. [Suspect]
     Active Substance: CHLORZOXAZONE
     Dosage: UNK
     Dates: start: 2004
  21. CIPROFLOXACIN. [Suspect]
     Active Substance: CIPROFLOXACIN
     Dosage: UNK
     Dates: start: 2003
  22. ZOSYN [Suspect]
     Active Substance: PIPERACILLIN SODIUM\TAZOBACTAM SODIUM
     Dosage: UNK
     Dates: start: 2002
  23. CODEINE [Suspect]
     Active Substance: CODEINE
  24. COTRIM [Suspect]
     Active Substance: SULFAMETHOXAZOLE\TRIMETHOPRIM
     Dosage: UNK
     Dates: start: 1981

REACTIONS (9)
  - Food allergy [None]
  - Hypersensitivity [Unknown]
  - Reaction to food additive [None]
  - Crohn^s disease [None]
  - Allergy to arthropod sting [None]
  - Cardiac arrest [None]
  - Drug hypersensitivity [None]
  - Contrast media allergy [None]
  - Allergy to chemicals [None]
